FAERS Safety Report 23054441 (Version 1)
Quarter: 2023Q4

REPORT INFORMATION
  Report Type: Spontaneous
  Country: BR (occurrence: None)
  Receive Date: 20231011
  Receipt Date: 20231011
  Transmission Date: 20240110
  Serious: Yes (Other)
  Sender: FDA-Public Use
  Company Number: 2023A228559

PATIENT
  Sex: Male

DRUGS (1)
  1. XIGDUO XR [Suspect]
     Active Substance: DAPAGLIFLOZIN PROPANEDIOL\METFORMIN HYDROCHLORIDE
     Dosage: 10/1000MG
     Route: 048

REACTIONS (4)
  - Cardiac failure [Unknown]
  - Decreased activity [Unknown]
  - Cerebrovascular accident [Unknown]
  - Diabetes mellitus [Unknown]
